FAERS Safety Report 4516351-6 (Version None)
Quarter: 2004Q4

REPORT INFORMATION
  Report Type: 
  Country: None (occurrence: None)
  Receive Date: 20041202
  Receipt Date: 20040922
  Transmission Date: 20050328
  Serious: No
  Sender: FDA-Public Use
  Company Number: 20040902470

PATIENT
  Sex: Female

DRUGS (5)
  1. AUGMENTIN '125' [Suspect]
     Indication: SINUSITIS
     Route: 048
     Dates: start: 20040825, end: 20040907
  2. NIZORAL [Suspect]
     Route: 061
     Dates: start: 20040905, end: 20040907
  3. PREMARIN [Concomitant]
     Dosage: .625MG UNKNOWN
     Route: 065
     Dates: start: 19920101
  4. VALDECOXIB [Concomitant]
     Dosage: 20MG AS REQUIRED
     Route: 048
     Dates: start: 20040301
  5. CONJUGATED ESTROGENS [Concomitant]

REACTIONS (2)
  - PRURITUS [None]
  - RASH [None]
